FAERS Safety Report 21724065 (Version 1)
Quarter: 2022Q4

REPORT INFORMATION
  Report Type: Report from Study
  Country: US (occurrence: US)
  Receive Date: 20221213
  Receipt Date: 20221213
  Transmission Date: 20230112
  Serious: Yes (Hospitalization)
  Sender: FDA-Public Use
  Company Number: US-UCBSA-2022069614

PATIENT
  Age: 80 Year
  Sex: Male

DRUGS (1)
  1. ROTIGOTINE [Suspect]
     Active Substance: ROTIGOTINE
     Indication: Parkinson^s disease
     Dosage: 6 MILLIGRAM, ONCE DAILY (QD)
     Route: 062

REACTIONS (4)
  - Cholelithiasis [Recovering/Resolving]
  - Cholecystitis infective [Recovering/Resolving]
  - Cholelithotomy [Recovering/Resolving]
  - Gallbladder operation [Recovering/Resolving]

NARRATIVE: CASE EVENT DATE: 20221125
